FAERS Safety Report 5427320-6 (Version None)
Quarter: 2007Q3

REPORT INFORMATION
  Report Type: 
  Country: None (occurrence: None)
  Receive Date: 20070823
  Receipt Date: 20070813
  Transmission Date: 20080115
  Serious: Yes (Death)
  Sender: FDA-Public Use
  Company Number: 17246

PATIENT
  Age: 61 Year
  Sex: Male

DRUGS (3)
  1. VINCRISTINE. MFR: MAYNE [Suspect]
     Dates: start: 20070402, end: 20070610
  2. DEXAMETHASONE 0.5MG TAB [Suspect]
     Dosage: 40 MG DAILY PO
     Route: 048
     Dates: start: 20070402, end: 20070610
  3. DOXORUBICIN HCL [Suspect]
     Dates: start: 20070402, end: 20070610

REACTIONS (7)
  - BRAIN HERNIATION [None]
  - ENDOCARDITIS STAPHYLOCOCCAL [None]
  - GENERAL PHYSICAL HEALTH DETERIORATION [None]
  - ISCHAEMIC STROKE [None]
  - LUNG ABSCESS [None]
  - SEPSIS [None]
  - SEPTIC EMBOLUS [None]
